FAERS Safety Report 4816851-5 (Version None)
Quarter: 2005Q4

REPORT INFORMATION
  Report Type: 
  Country: None (occurrence: None)
  Receive Date: 20051101
  Receipt Date: 20051026
  Transmission Date: 20060501
  Serious: Yes (Life-Threatening, Other)
  Sender: FDA-Public Use
  Company Number: FR-JNJFOC-20031104843

PATIENT
  Age: 38 Year
  Sex: Female

DRUGS (8)
  1. REMICADE [Suspect]
     Route: 042
  2. REMICADE [Suspect]
     Indication: RHEUMATOID ARTHRITIS
     Route: 042
  3. METHOTREXATE [Concomitant]
  4. CORTANCYL [Concomitant]
  5. PROFENID [Concomitant]
  6. TOPALGIC [Concomitant]
  7. MOPRAL [Concomitant]
  8. FOSAMAX [Concomitant]

REACTIONS (2)
  - BREAST CANCER [None]
  - PHLEBITIS [None]
